FAERS Safety Report 21443135 (Version 4)
Quarter: 2022Q4

REPORT INFORMATION
  Report Type: Spontaneous
  Country: DE (occurrence: DE)
  Receive Date: 20221012
  Receipt Date: 20221207
  Transmission Date: 20230113
  Serious: Yes (Death, Life-Threatening, Hospitalization, Other)
  Sender: FDA-Public Use
  Company Number: DE-ASTELLAS-2022US034814

PATIENT
  Age: 72 Year
  Sex: Male

DRUGS (9)
  1. XTANDI [Suspect]
     Active Substance: ENZALUTAMIDE
     Indication: Hormone-dependent prostate cancer
     Dosage: 160 MG, ONCE DAILY (0-0-4-0)
     Route: 048
     Dates: start: 20220815, end: 20221004
  2. LEUPROLIDE ACETATE [Concomitant]
     Active Substance: LEUPROLIDE ACETATE
     Indication: Product used for unknown indication
     Dosage: 5 MG, UNKNOWN FREQ. (EFFECTIVENESS 3 MONTHS)
     Route: 065
  3. INNOHEP [Concomitant]
     Active Substance: TINZAPARIN SODIUM
     Indication: Thrombosis prophylaxis
     Dosage: 12000 IU, ONCE DAILY IN THE EVENING
     Route: 065
  4. NALOXONE HYDROCHLORIDE\TILIDINE HYDROCHLORIDE [Concomitant]
     Active Substance: NALOXONE HYDROCHLORIDE\TILIDINE HYDROCHLORIDE
     Indication: Pain
     Dosage: 1-2 TABLETS PER INTAKE AS PAIN TREATMENT (MAXIMUM DOSE: 6 TABLETS PER DAY)
     Route: 065
  5. NALOXONE HYDROCHLORIDE\OXYCODONE HYDROCHLORIDE [Concomitant]
     Active Substance: NALOXONE HYDROCHLORIDE\OXYCODONE HYDROCHLORIDE
     Indication: Pain management
     Dosage: 1 DF, EVERY 12 HOURS (5/2.5 MG AS NEEDED)
     Route: 065
  6. LEVOTHYROXINE [Concomitant]
     Active Substance: LEVOTHYROXINE
     Indication: Autoimmune thyroiditis
     Dosage: 50 - 100 MICROGRAM IN INCREASING DOSAGE (ONCE DAILY IN THE MORNING 30 MINUTES BEFORE THE FIRST MEAL)
     Route: 065
  7. EUTHYROX [Concomitant]
     Active Substance: LEVOTHYROXINE SODIUM
     Indication: Autoimmune thyroiditis
     Dosage: DOSAGE WAS BETWEEN 0 MICG AND 100 MICG, UNKNOWN FREQUENCY
     Route: 065
  8. EUTHYROX [Concomitant]
     Active Substance: LEVOTHYROXINE SODIUM
     Route: 065
  9. EUTHYROX [Concomitant]
     Active Substance: LEVOTHYROXINE SODIUM
     Route: 065

REACTIONS (9)
  - Urinary incontinence [Unknown]
  - Malignant neoplasm progression [Fatal]
  - Renal disorder [Recovered/Resolved]
  - Kidney congestion [Unknown]
  - Anal incontinence [Unknown]
  - Dyskinesia [Unknown]
  - Gait inability [Unknown]
  - Dysstasia [Unknown]
  - Back pain [Unknown]

NARRATIVE: CASE EVENT DATE: 20220926
